FAERS Safety Report 22125016 (Version 1)
Quarter: 2023Q1

REPORT INFORMATION
  Report Type: Spontaneous
  Country: NL (occurrence: NL)
  Receive Date: 20230322
  Receipt Date: 20230322
  Transmission Date: 20230418
  Serious: Yes (Hospitalization)
  Sender: FDA-Public Use
  Company Number: None

PATIENT
  Sex: Female
  Weight: 99 kg

DRUGS (9)
  1. RITUXIMAB [Suspect]
     Active Substance: RITUXIMAB
     Indication: Non-Hodgkin^s lymphoma
     Dosage: ONCE A WEEK, FOUR WEEKS
     Dates: start: 20230214
  2. LEVOTHYROXINE [Concomitant]
     Active Substance: LEVOTHYROXINE
     Dosage: CAPSULE, 100 ?G (MICROGRAM)
  3. ESTRADIOL [Concomitant]
     Active Substance: ESTRADIOL
     Dosage: TABLET, 1 MG (MILLIGRAM)
  4. DULOXETINE [Concomitant]
     Active Substance: DULOXETINE
     Dosage: MAAGSAPRESISTENTE CAPSULE, 30 MG (MILLIGRAM)
  5. MELOXICAM [Concomitant]
     Active Substance: MELOXICAM
     Dosage: TABLET, 7,5 MG (MILLIGRAM)
  6. CYTOMEL [Concomitant]
     Active Substance: LIOTHYRONINE SODIUM
     Dosage: TABLET, 5 ?G (MICROGRAM)
  7. AMILORIDE/HYDROCHLOORTHIAZIDE A [Concomitant]
     Dosage: TABLET, 5/50 MG (MILLIGRAM)
  8. ESOMEPRAZOLE [Concomitant]
     Active Substance: ESOMEPRAZOLE
     Dosage: MAAGSAPRESISTENTE CAPSULE, 40 MG (MILLIGRAM)
  9. METFORMIN HYDROCHLORIDE [Concomitant]
     Active Substance: METFORMIN HYDROCHLORIDE
     Dosage: TABLET MET GEREGULEERDE AFGIFTE, 500 MG (MILLIGRAM)

REACTIONS (4)
  - Nausea [Recovering/Resolving]
  - Gastric disorder [Recovering/Resolving]
  - Influenza like illness [Recovering/Resolving]
  - Abdominal pain upper [Recovering/Resolving]
